FAERS Safety Report 16739441 (Version 1)
Quarter: 2019Q3

REPORT INFORMATION
  Report Type: Report from Study
  Country: None (occurrence: RO)
  Receive Date: 20190826
  Receipt Date: 20190826
  Transmission Date: 20191005
  Serious: Yes (Hospitalization)
  Sender: FDA-Public Use
  Company Number: RO-ABBVIE-19K-135-2898905-00

PATIENT
  Age: 63 Year
  Sex: Female

DRUGS (5)
  1. COAXIL [Concomitant]
     Active Substance: TIANEPTINE SODIUM
     Indication: DEPRESSION
     Route: 048
     Dates: start: 2011
  2. EXVIERA [Suspect]
     Active Substance: DASABUVIR
     Indication: CHRONIC HEPATITIS C
     Route: 048
     Dates: start: 20190130, end: 20190423
  3. VITAMIN C [Suspect]
     Active Substance: ASCORBIC ACID
     Indication: INFLUENZA
     Route: 048
     Dates: start: 201904, end: 201904
  4. VIEKIRAX [Suspect]
     Active Substance: OMBITASVIR\PARITAPREVIR\RITONAVIR
     Indication: CHRONIC HEPATITIS C
     Route: 048
     Dates: start: 20190130, end: 20190423
  5. LAGOSA [Concomitant]
     Active Substance: DIETARY SUPPLEMENT\HERBALS\MILK THISTLE
     Indication: LIVER DISORDER
     Route: 048
     Dates: start: 20190726

REACTIONS (11)
  - Nephrolithiasis [Not Recovered/Not Resolved]
  - Abdominal pain upper [Recovered/Resolved]
  - Weight decreased [Not Recovered/Not Resolved]
  - Headache [Not Recovered/Not Resolved]
  - Pruritus [Not Recovered/Not Resolved]
  - Dyspepsia [Recovered/Resolved]
  - Insomnia [Recovered/Resolved]
  - Influenza [Recovered/Resolved]
  - Rash papular [Not Recovered/Not Resolved]
  - Dizziness [Not Recovered/Not Resolved]
  - Dysphonia [Recovered/Resolved]

NARRATIVE: CASE EVENT DATE: 201902
